FAERS Safety Report 9350458 (Version 6)
Quarter: 2014Q4

REPORT INFORMATION
  Report Type: Spontaneous
  Country: US (occurrence: US)
  Receive Date: 20130617
  Receipt Date: 20141013
  Transmission Date: 20150529
  Serious: No
  Sender: FDA-Public Use
  Company Number: US-PFIZER INC-2013179496

PATIENT
  Age: 56 Year
  Sex: Female

DRUGS (12)
  1. AMITRIPTYLINE HYDROCHLORIDE. [Suspect]
     Active Substance: AMITRIPTYLINE HYDROCHLORIDE
     Dosage: 10 MG, UNK
  2. ENBREL [Suspect]
     Active Substance: ETANERCEPT
     Dosage: 25 MG/ 0.5 ML
  3. BACTRIM DS [Suspect]
     Active Substance: SULFAMETHOXAZOLE\TRIMETHOPRIM
     Dosage: UNK
  4. DEMEROL [Suspect]
     Active Substance: MEPERIDINE HYDROCHLORIDE
     Dosage: 100 MG, UNK
  5. HUMIRA [Suspect]
     Active Substance: ADALIMUMAB
     Dosage: 20 MG/ 0.4 ML
  6. PROTONIX [Suspect]
     Active Substance: PANTOPRAZOLE SODIUM
     Dosage: 20 MG, UNK
  7. ETODOLAC. [Suspect]
     Active Substance: ETODOLAC
     Dosage: UNK
  8. TRAMADOL HYDROCHLORIDE. [Suspect]
     Active Substance: TRAMADOL HYDROCHLORIDE
     Dosage: 50 MG, UNK
  9. ARAVA [Suspect]
     Active Substance: LEFLUNOMIDE
     Dosage: 10 MG, UNK
  10. CODEINE SULFATE. [Suspect]
     Active Substance: CODEINE SULFATE
     Dosage: 30 MG, UNK
  11. DARVON [Suspect]
     Active Substance: PROPOXYPHENE HYDROCHLORIDE
     Dosage: UNK
  12. LORTAB [Suspect]
     Active Substance: ACETAMINOPHEN\HYDROCODONE BITARTRATE
     Dosage: 10-500, UNK

REACTIONS (1)
  - Drug hypersensitivity [Unknown]
